FAERS Safety Report 9624705 (Version 1)
Quarter: 2013Q4

REPORT INFORMATION
  Report Type: Spontaneous
  Country: FR (occurrence: FR)
  Receive Date: 20131015
  Receipt Date: 20131015
  Transmission Date: 20140711
  Serious: Yes (Hospitalization)
  Sender: FDA-Public Use
  Company Number: FR-ROCHE-1289099

PATIENT
  Sex: Female

DRUGS (3)
  1. LUCENTIS [Suspect]
     Indication: AGE-RELATED MACULAR DEGENERATION
     Dosage: 30 INJECTIONS
     Route: 050
     Dates: start: 2007
  2. SYMBICORT [Concomitant]
  3. BRICANYL [Concomitant]

REACTIONS (2)
  - Respiratory failure [Unknown]
  - Joint swelling [Unknown]
